FAERS Safety Report 20087698 (Version 1)
Quarter: 2021Q4

REPORT INFORMATION
  Report Type: Spontaneous
  Country: JP (occurrence: JP)
  Receive Date: 20211118
  Receipt Date: 20211118
  Transmission Date: 20220303
  Serious: Yes (Other)
  Sender: FDA-Public Use
  Company Number: JP-INGENUS PHARMACEUTICALS, LLC-2021INF000135

PATIENT
  Sex: Female

DRUGS (13)
  1. DOCETAXEL [Suspect]
     Active Substance: DOCETAXEL
     Indication: Breast cancer stage II
     Dosage: 75 MILLIGRAM/SQ. METER EVERY 3 WEEKS
     Route: 065
  2. CYCLOPHOSPHAMIDE [Suspect]
     Active Substance: CYCLOPHOSPHAMIDE
     Indication: Breast cancer stage II
     Dosage: EVERY 3 WEEKS, 4 TIMES
     Route: 065
  3. PERTUZUMAB [Suspect]
     Active Substance: PERTUZUMAB
     Indication: Breast cancer stage II
     Dosage: 840 MG IN INITIAL + 420 MG IN SUBSEQUENT ADMINISTRATION, EVERY 3 WEEKS
     Route: 065
  4. TRASTUZUMAB [Suspect]
     Active Substance: TRASTUZUMAB
     Indication: Breast cancer stage II
     Dosage: 8 MG/KG  IN INITIAL + 6 MG/KG IN SUBSEQUENT ADMINISTRATION, EVERY 3 WEEKS
     Route: 065
  5. EPIRUBICIN [Suspect]
     Active Substance: EPIRUBICIN
     Indication: Breast cancer stage II
     Dosage: EVERY 3 WEEKS, 4 TIMES
     Route: 065
  6. DEXAMETHASONE [Concomitant]
     Active Substance: DEXAMETHASONE
     Indication: Pain
     Dosage: 6.6 MILLIGRAM ON DAY 1
     Route: 042
  7. DEXAMETHASONE [Concomitant]
     Active Substance: DEXAMETHASONE
     Indication: Oedema
     Dosage: 8 MILLIGRAM  ON DAYS 2?4
     Route: 048
  8. PEGFILGRASTIM [Concomitant]
     Active Substance: PEGFILGRASTIM
     Indication: Product used for unknown indication
     Dosage: 3.6 MILLIGRAM ON DAY 3
     Route: 058
  9. METOCLOPRAMIDE [Concomitant]
     Active Substance: METOCLOPRAMIDE
     Indication: Prophylaxis of nausea and vomiting
     Dosage: 5 MILLIGRAM, TID, FROM DAY 1 TO DAY 8
  10. SITAGLIPTIN PHOSPHATE [Concomitant]
     Active Substance: SITAGLIPTIN PHOSPHATE
     Indication: Diabetes mellitus
     Dosage: 50 MILLIGRAM, QD
     Route: 065
  11. ROSUVASTATIN [Concomitant]
     Active Substance: ROSUVASTATIN
     Indication: Hyperlipidaemia
     Dosage: 5 MILLIGRAM, QD
     Route: 065
  12. ETHYL LOFLAZEPATE [Concomitant]
     Active Substance: ETHYL LOFLAZEPATE
     Indication: Sensory processing disorder
     Dosage: 1 MILLIGRAM, BID
     Route: 065
  13. TRIHEXYPHENIDYL HYDROCHLORIDE [Concomitant]
     Active Substance: TRIHEXYPHENIDYL HYDROCHLORIDE
     Indication: Sensory processing disorder
     Dosage: 2 MILLIGRAM, BID
     Route: 065

REACTIONS (8)
  - Hypertriglyceridaemia [Recovering/Resolving]
  - Diarrhoea [Recovering/Resolving]
  - Oedema [Unknown]
  - Fatigue [Unknown]
  - Neuropathy peripheral [Unknown]
  - Aspartate aminotransferase increased [Unknown]
  - Gamma-glutamyltransferase increased [Unknown]
  - Alanine aminotransferase increased [Unknown]
